FAERS Safety Report 8551955-5 (Version None)
Quarter: 2012Q3

REPORT INFORMATION
  Report Type: 
  Country: None (occurrence: None)
  Receive Date: 20120730
  Receipt Date: 20120716
  Transmission Date: 20120928
  Serious: Yes (Death, Other)
  Sender: FDA-Public Use
  Company Number: ES-ROCHE-1086043

PATIENT
  Age: 76 Year
  Sex: Female

DRUGS (9)
  1. ENALAPRIL MALEATE [Concomitant]
  2. CLOPIDOGREL [Concomitant]
  3. INSULIN [Concomitant]
  4. ACETYLSALICYLIC ACID SRT [Concomitant]
  5. LEVOTHYROXINE SODIUM [Concomitant]
  6. DOXAZOSIN MESYLATE [Concomitant]
  7. ATORVASTATIN [Concomitant]
  8. NITROGLYCERIN [Concomitant]
  9. ALTEPLASE [Suspect]
     Indication: ISCHAEMIC STROKE
     Route: 042

REACTIONS (10)
  - PUPILLARY REFLEX IMPAIRED [None]
  - TACHYCARDIA [None]
  - BRAIN OEDEMA [None]
  - BRAIN HERNIATION [None]
  - BRAIN INJURY [None]
  - TACHYPNOEA [None]
  - CEREBRAL VENTRICLE DILATATION [None]
  - COMA [None]
  - AREFLEXIA [None]
  - SUBDURAL HAEMATOMA [None]
